FAERS Safety Report 9857836 (Version 1)
Quarter: 2014Q1

REPORT INFORMATION
  Report Type: Spontaneous
  Country: GB (occurrence: GB)
  Receive Date: 20140131
  Receipt Date: 20140131
  Transmission Date: 20141002
  Serious: Yes (Disabling)
  Sender: FDA-Public Use
  Company Number: GB-009507513-1401GBR013142

PATIENT
  Age: 64 Year
  Sex: Female
  Weight: 47 kg

DRUGS (2)
  1. ALENDRONATE SODIUM [Suspect]
     Indication: OSTEOPOROSIS
     Dosage: 70 MG, UNK
     Route: 048
     Dates: start: 20081002, end: 20131101
  2. ADCAL-D3 [Concomitant]
     Dosage: 2 DF, UNK
     Route: 048
     Dates: start: 20131002

REACTIONS (3)
  - Back pain [Recovered/Resolved]
  - Chest pain [Recovered/Resolved]
  - Musculoskeletal pain [Recovered/Resolved]
